FAERS Safety Report 24569952 (Version 1)
Quarter: 2024Q4

REPORT INFORMATION
  Report Type: Spontaneous
  Country: US (occurrence: None)
  Receive Date: 20241031
  Receipt Date: 20241031
  Transmission Date: 20250115
  Serious: Yes (Other)
  Sender: Public
  Company Number: None

PATIENT
  Age: 67 Year
  Sex: Female

DRUGS (1)
  1. NEXLIZET [Suspect]
     Active Substance: BEMPEDOIC ACID\EZETIMIBE
     Indication: Blood cholesterol increased
     Dosage: FREQUENCY : DAILY;?
     Route: 048
     Dates: start: 20241020, end: 20241026

REACTIONS (16)
  - Arthralgia [None]
  - Arthralgia [None]
  - Pain in extremity [None]
  - Back pain [None]
  - Pain in extremity [None]
  - Pain [None]
  - Pain in extremity [None]
  - Chills [None]
  - Productive cough [None]
  - Dyspnoea [None]
  - Dyskinesia [None]
  - Dysuria [None]
  - Pollakiuria [None]
  - Heart rate increased [None]
  - Musculoskeletal stiffness [None]
  - Adverse drug reaction [None]

NARRATIVE: CASE EVENT DATE: 20241026
